FAERS Safety Report 8939395 (Version 2)
Quarter: 2012Q4

REPORT INFORMATION
  Report Type: 
  Country: CN (occurrence: CN)
  Receive Date: 20121203
  Receipt Date: 20121210
  Transmission Date: 20130627
  Serious: Yes (Hospitalization, Other)
  Sender: FDA-Public Use
  Company Number: CN-SANOFI-AVENTIS-2012SA088108

PATIENT
  Age: 43 Year
  Sex: Female

DRUGS (2)
  1. DESMOPRESSIN ACETATE [Suspect]
     Indication: CENTRAL DIABETES INSIPIDUS
     Route: 048
  2. PREDNISONE [Concomitant]
     Route: 048

REACTIONS (17)
  - Posterior reversible encephalopathy syndrome [Recovered/Resolved]
  - Visual acuity reduced [Recovered/Resolved]
  - Hypertension [Recovered/Resolved]
  - Partial seizures [Recovered/Resolved]
  - Mental impairment [Recovered/Resolved]
  - Nuclear magnetic resonance imaging brain abnormal [Recovered/Resolved]
  - Headache [Recovered/Resolved]
  - Confusional state [Recovered/Resolved]
  - Dysarthria [Recovered/Resolved]
  - Muscle twitching [Recovered/Resolved]
  - Staring [Recovered/Resolved]
  - Brain oedema [Recovered/Resolved]
  - Dizziness [Recovered/Resolved]
  - Optic atrophy [Recovered/Resolved]
  - Visual field defect [Recovered/Resolved]
  - Pupillary reflex impaired [Recovered/Resolved]
  - Hyponatraemia [Recovered/Resolved]
